FAERS Safety Report 18671261 (Version 1)
Quarter: 2020Q4

REPORT INFORMATION
  Report Type: Spontaneous
  Country: BR (occurrence: BR)
  Receive Date: 20201228
  Receipt Date: 20201228
  Transmission Date: 20210114
  Serious: Yes (Other)
  Sender: FDA-Public Use
  Company Number: BR-BAYER-2020-282190

PATIENT
  Age: 56 Year
  Sex: Female

DRUGS (4)
  1. PARATRAM [Concomitant]
     Active Substance: ACETAMINOPHEN\TRAMADOL HYDROCHLORIDE
     Indication: SPINAL PAIN
     Dates: start: 20201204
  2. FLANAX 550 MG [Suspect]
     Active Substance: NAPROXEN SODIUM
     Indication: ARTHRALGIA
  3. FLANAX 550 MG [Suspect]
     Active Substance: NAPROXEN SODIUM
     Indication: SPINAL PAIN
     Dosage: 1 DF, UNK
     Dates: start: 20201020, end: 20201120
  4. FLANAX 550 MG [Suspect]
     Active Substance: NAPROXEN SODIUM
     Indication: ARTHRALGIA

REACTIONS (2)
  - Visual impairment [Not Recovered/Not Resolved]
  - Exophthalmos [None]

NARRATIVE: CASE EVENT DATE: 20201101
